FAERS Safety Report 7521238-0 (Version None)
Quarter: 2011Q2

REPORT INFORMATION
  Report Type: 
  Country: None (occurrence: None)
  Receive Date: 20110603
  Receipt Date: 20101213
  Transmission Date: 20111010
  Serious: Yes (Other)
  Sender: FDA-Public Use
  Company Number: US-BAYER-2010-004263

PATIENT
  Age: 62 Year
  Sex: Female

DRUGS (5)
  1. TRAMADOL HYDROCHLORIDE [Concomitant]
  2. LEXAPRO [Concomitant]
  3. CIPRO [Suspect]
     Indication: URINARY TRACT INFECTION
     Dosage: 500 MG, BID
     Route: 048
     Dates: start: 20101001
  4. HYDROCHLOROTHIAZIDE [Concomitant]
  5. VALIUM [Concomitant]

REACTIONS (4)
  - ABASIA [None]
  - MENISCUS LESION [None]
  - JOINT SWELLING [None]
  - OEDEMA PERIPHERAL [None]
